FAERS Safety Report 11243573 (Version 2)
Quarter: 2015Q3

REPORT INFORMATION
  Report Type: Report from Study
  Country: US (occurrence: US)
  Receive Date: 20150707
  Receipt Date: 20150911
  Transmission Date: 20151125
  Serious: No
  Sender: FDA-Public Use
  Company Number: PHEH2015US002026

PATIENT
  Age: 50 Year
  Sex: Female
  Weight: 73.92 kg

DRUGS (1)
  1. GILENYA [Suspect]
     Active Substance: FINGOLIMOD HYDROCHLORIDE
     Indication: MULTIPLE SCLEROSIS
     Dosage: 0.5 MG, QD (1 PILL DAILY)
     Route: 048
     Dates: start: 20150119

REACTIONS (24)
  - Stress [Unknown]
  - Oropharyngeal pain [Unknown]
  - Connective tissue disorder [Unknown]
  - Sinusitis [Not Recovered/Not Resolved]
  - Heart rate increased [Not Recovered/Not Resolved]
  - Eye disorder [Unknown]
  - Pain [Unknown]
  - Insomnia [Unknown]
  - Peripheral swelling [Unknown]
  - Cognitive disorder [Unknown]
  - Dysphonia [Not Recovered/Not Resolved]
  - Visual impairment [Unknown]
  - Confusional state [Unknown]
  - Nasopharyngitis [Unknown]
  - Weight increased [Unknown]
  - Joint swelling [Unknown]
  - Memory impairment [Not Recovered/Not Resolved]
  - Tenderness [Unknown]
  - Heart rate decreased [Not Recovered/Not Resolved]
  - Eye pain [Unknown]
  - Dysphagia [Unknown]
  - Limb injury [Unknown]
  - Dizziness [Unknown]
  - Sinus disorder [Unknown]

NARRATIVE: CASE EVENT DATE: 20150119
